FAERS Safety Report 11752875 (Version 2)
Quarter: 2016Q2

REPORT INFORMATION
  Report Type: Spontaneous
  Country: US (occurrence: US)
  Receive Date: 20151119
  Receipt Date: 20160524
  Transmission Date: 20160815
  Serious: Yes (Other)
  Sender: FDA-Public Use
  Company Number: US-ASTRAZENECA-2015SF09782

PATIENT
  Sex: Female

DRUGS (2)
  1. BETA BLOCKER [Concomitant]
     Active Substance: UNSPECIFIED INGREDIENT
  2. BRILINTA [Suspect]
     Active Substance: TICAGRELOR
     Indication: ACUTE CORONARY SYNDROME
     Route: 048

REACTIONS (5)
  - Contusion [Recovering/Resolving]
  - Intentional product misuse [Unknown]
  - Tooth disorder [Unknown]
  - Epistaxis [Recovering/Resolving]
  - Ear haemorrhage [Recovering/Resolving]
